FAERS Safety Report 6696864-1 (Version None)
Quarter: 2010Q2

REPORT INFORMATION
  Report Type: 
  Country: None (occurrence: None)
  Receive Date: 20100426
  Receipt Date: 20100419
  Transmission Date: 20101027
  Serious: Yes (Other)
  Sender: FDA-Public Use
  Company Number: US-MERCK-1004USA03435

PATIENT

DRUGS (4)
  1. JANUVIA [Suspect]
     Indication: TYPE 2 DIABETES MELLITUS
     Route: 048
  2. METFORMIN [Concomitant]
     Route: 065
  3. ACTOS [Concomitant]
     Route: 065
  4. ANDROGEL [Concomitant]
     Route: 065

REACTIONS (1)
  - PULMONARY EMBOLISM [None]
